FAERS Safety Report 9394277 (Version 1)
Quarter: 2013Q3

REPORT INFORMATION
  Report Type: Spontaneous
  Country: US (occurrence: US)
  Receive Date: 20130711
  Receipt Date: 20130711
  Transmission Date: 20140515
  Serious: No
  Sender: FDA-Public Use
  Company Number: US-B.I. PHARMACEUTICALS,INC./RIDGEFIELD-2013-BI-19864BP

PATIENT
  Age: 61 Year
  Sex: Male

DRUGS (2)
  1. COMBIVENT [Suspect]
     Indication: CHRONIC OBSTRUCTIVE PULMONARY DISEASE
     Dosage: STRENGTH: 20 MCG / 100 MCG; DAILY DOSE: 240 MCG / 1200 MCG
     Route: 055
     Dates: start: 20130628
  2. COMBIVENT [Suspect]
     Dosage: STRENGTH: 20 MCG / 100 MCG; DAILY DOSE: 240 MCG / 1200 MCG
     Route: 055
     Dates: start: 20130628

REACTIONS (1)
  - Drug prescribing error [Not Recovered/Not Resolved]
